FAERS Safety Report 11911688 (Version 1)
Quarter: 2016Q1

REPORT INFORMATION
  Report Type: Spontaneous
  Country: US (occurrence: US)
  Receive Date: 20160112
  Receipt Date: 20160112
  Transmission Date: 20160526
  Serious: Yes (Other)
  Sender: FDA-Public Use
  Company Number: US-DSJP-DSJ-2015-113155AA

PATIENT

DRUGS (15)
  1. VITAMIN B [Suspect]
     Active Substance: VITAMIN B
     Dosage: UNK
     Route: 065
  2. PLAQUENIL [Suspect]
     Active Substance: HYDROXYCHLOROQUINE SULFATE
     Dosage: UNK
     Route: 065
  3. COLACE [Suspect]
     Active Substance: DOCUSATE SODIUM
     Dosage: UNK
     Route: 065
  4. ASA [Suspect]
     Active Substance: ASPIRIN
     Dosage: UNK
     Route: 065
  5. PREMARIN [Suspect]
     Active Substance: ESTROGENS, CONJUGATED
     Dosage: UNK
     Route: 065
  6. NEURONTIN [Suspect]
     Active Substance: GABAPENTIN
     Dosage: UNK
     Route: 065
  7. MIRALAX [Suspect]
     Active Substance: POLYETHYLENE GLYCOL 3350
     Dosage: UNK
     Route: 065
  8. VALERIAN /01561601/ [Suspect]
     Active Substance: VALERIAN
     Dosage: UNK
     Route: 065
  9. BACLOFEN INTRATHECAL [Suspect]
     Active Substance: BACLOFEN
     Indication: MUSCLE SPASTICITY
     Dosage: 149 MG/DAY
     Route: 037
  10. REQUIP [Suspect]
     Active Substance: ROPINIROLE HYDROCHLORIDE
     Dosage: UNK
     Route: 065
  11. TRAMADOL                           /00599202/ [Suspect]
     Active Substance: TRAMADOL
     Dosage: UNK
     Route: 065
  12. NORVASC [Suspect]
     Active Substance: AMLODIPINE BESYLATE
     Dosage: UNK
     Route: 065
  13. RELAFEN [Suspect]
     Active Substance: NABUMETONE
     Dosage: UNK
     Route: 065
  14. MELATONIN [Suspect]
     Active Substance: MELATONIN
     Dosage: UNK
     Route: 065
  15. CEVIMELINE HYDROCHLORIDE HYDRATE [Suspect]
     Active Substance: CEVIMELINE HYDROCHLORIDE
     Indication: PRODUCT USED FOR UNKNOWN INDICATION
     Dosage: UNK
     Route: 065

REACTIONS (5)
  - Fall [Unknown]
  - Back pain [Unknown]
  - Nerve injury [Unknown]
  - Loss of control of legs [Unknown]
  - Pain in extremity [Unknown]

NARRATIVE: CASE EVENT DATE: 20150113
